FAERS Safety Report 7914667-4 (Version None)
Quarter: 2011Q4

REPORT INFORMATION
  Report Type: 
  Country: None (occurrence: None)
  Receive Date: 20111115
  Receipt Date: 20111108
  Transmission Date: 20120403
  Serious: Yes (Death, Other)
  Sender: FDA-Public Use
  Company Number: PHEH2011US04686

PATIENT
  Sex: Female

DRUGS (5)
  1. VICODIN [Concomitant]
     Indication: PAIN
     Dosage: 5 MG, BID
     Route: 048
     Dates: start: 20110701, end: 20110901
  2. ZOLOFT [Concomitant]
     Indication: DEPRESSED MOOD
     Dosage: 50 MG, QD
     Route: 048
     Dates: end: 20110901
  3. XANAX [Concomitant]
     Indication: TREMOR
     Dosage: 2 MG, TID
     Route: 048
     Dates: start: 20110701, end: 20110901
  4. NEURONTIN [Concomitant]
     Indication: TREMOR
     Dosage: 300 MG, TID
     Route: 048
     Dates: start: 20110701, end: 20110901
  5. GILENYA [Suspect]
     Indication: MULTIPLE SCLEROSIS
     Dosage: 0.5 MG, QD
     Route: 048
     Dates: start: 20110831

REACTIONS (3)
  - ATRIOVENTRICULAR BLOCK SECOND DEGREE [None]
  - PROGRESSIVE RELAPSING MULTIPLE SCLEROSIS [None]
  - DEATH [None]
